FAERS Safety Report 22919201 (Version 2)
Quarter: 2023Q4

REPORT INFORMATION
  Report Type: Report from Study
  Country: US (occurrence: US)
  Receive Date: 20230907
  Receipt Date: 20231114
  Transmission Date: 20240110
  Serious: Yes (Other)
  Sender: FDA-Public Use
  Company Number: US-ABBVIE-5397809

PATIENT
  Sex: Female

DRUGS (3)
  1. IMBRUVICA [Suspect]
     Active Substance: IBRUTINIB
     Indication: Chronic lymphocytic leukaemia recurrent
     Dosage: TIME INTERVAL: 0.33333333 DAYS: DRUG START DATE MAR 2023
     Route: 048
     Dates: end: 20230408
  2. IMBRUVICA [Suspect]
     Active Substance: IBRUTINIB
     Indication: Chronic lymphocytic leukaemia recurrent
     Dosage: TIME INTERVAL: 0.33333333 DAYS
     Route: 048
     Dates: start: 20160830, end: 20230310
  3. IMBRUVICA [Suspect]
     Active Substance: IBRUTINIB
     Indication: Chronic lymphocytic leukaemia recurrent
     Dosage: TIME INTERVAL: 0.33333333 DAYS: DRUG START DATE 2023
     Route: 048

REACTIONS (4)
  - Seizure [Unknown]
  - Ageusia [Unknown]
  - Adverse drug reaction [Unknown]
  - Anosmia [Unknown]

NARRATIVE: CASE EVENT DATE: 20230101
